FAERS Safety Report 6492529-X (Version None)
Quarter: 2009Q4

REPORT INFORMATION
  Report Type: 
  Country: None (occurrence: None)
  Receive Date: 20091214
  Receipt Date: 20091203
  Transmission Date: 20100525
  Serious: Yes (Disabling)
  Sender: FDA-Public Use
  Company Number: JP-ASTRAZENECA-2009SE29432

PATIENT
  Age: 50 Year
  Sex: Female

DRUGS (2)
  1. XYLOCAINE [Suspect]
     Indication: ANALGESIC THERAPY
     Route: 030
     Dates: start: 20091127
  2. RINDERON [Concomitant]
     Indication: ANALGESIC THERAPY
     Route: 030
     Dates: start: 20091127

REACTIONS (1)
  - PAIN IN EXTREMITY [None]
